FAERS Safety Report 22400247 (Version 1)
Quarter: 2023Q2

REPORT INFORMATION
  Report Type: Spontaneous
  Country: US (occurrence: None)
  Receive Date: 20230601
  Receipt Date: 20230601
  Transmission Date: 20230722
  Serious: Yes (Other)
  Sender: FDA-Public Use
  Company Number: None

PATIENT
  Age: 29 Year
  Sex: Male
  Weight: 64.53 kg

DRUGS (2)
  1. TRAZODONE [Suspect]
     Active Substance: TRAZODONE HYDROCHLORIDE
     Indication: Insomnia
     Dosage: FREQUENCY : AT BEDTIME;?
     Route: 048
     Dates: end: 20230221
  2. PRAZOSIN [Concomitant]
     Active Substance: PRAZOSIN
     Dates: start: 20230127

REACTIONS (1)
  - Spontaneous penile erection [None]

NARRATIVE: CASE EVENT DATE: 20230220
